FAERS Safety Report 9641943 (Version 1)
Quarter: 2013Q4

REPORT INFORMATION
  Report Type: Spontaneous
  Country: DE (occurrence: DE)
  Receive Date: 20131023
  Receipt Date: 20131023
  Transmission Date: 20140711
  Serious: Yes (Hospitalization)
  Sender: FDA-Public Use
  Company Number: DE-UCBSA-100973

PATIENT
  Sex: 0

DRUGS (2)
  1. LEVETIRACETAM [Suspect]
     Dosage: 1500 MG
  2. VALPROATE [Concomitant]

REACTIONS (2)
  - Aggression [Recovering/Resolving]
  - Central pain syndrome [Recovered/Resolved]
